FAERS Safety Report 15809152 (Version 5)
Quarter: 2019Q4

REPORT INFORMATION
  Report Type: Spontaneous
  Country: US (occurrence: US)
  Receive Date: 20190110
  Receipt Date: 20191021
  Transmission Date: 20200122
  Serious: Yes (Hospitalization)
  Sender: FDA-Public Use
  Company Number: US-ACTELION-A-NJ2018-184032

PATIENT
  Age: 70 Year
  Sex: Female

DRUGS (12)
  1. OPSUMIT [Suspect]
     Active Substance: MACITENTAN
     Indication: PULMONARY HYPERTENSION
     Dosage: 10 MG, QD
     Route: 048
     Dates: start: 20180808, end: 20181004
  2. HUMULIN N [Concomitant]
     Active Substance: INSULIN HUMAN
     Dosage: 48 UNITS IN AM AND PM
  3. OPSUMIT [Suspect]
     Active Substance: MACITENTAN
     Dosage: 10 MG, QD
     Route: 048
     Dates: start: 20180808, end: 20190111
  4. PEPCID [Concomitant]
     Active Substance: FAMOTIDINE
     Dosage: 20 MG, BID
  5. WARFARIN [Concomitant]
     Active Substance: WARFARIN
     Dosage: 2 MG, DAILY, NOTHING ON SUNDAY AND THURSDAY
  6. ALLOPURINOL. [Concomitant]
     Active Substance: ALLOPURINOL
     Dosage: 300 MG, QD
  7. HUMULIN R [Concomitant]
     Active Substance: INSULIN HUMAN
     Dosage: 48 UNITS IN EVENING AND 10 UNITS IN MORNING BEFORE BREAKFAST
  8. SPIRONOLACTONE. [Concomitant]
     Active Substance: SPIRONOLACTONE
     Dosage: 12.5 MG, QD
  9. ROCEPHIN [Concomitant]
     Active Substance: CEFTRIAXONE SODIUM
     Dosage: 2 G
     Route: 042
  10. LEVOTHYROXINE. [Concomitant]
     Active Substance: LEVOTHYROXINE
     Dosage: 225 MG, QD
  11. METOPROLOL TARTRATE. [Concomitant]
     Active Substance: METOPROLOL TARTRATE
     Dosage: 12.5 MG, BID
  12. TRAMADOL. [Concomitant]
     Active Substance: TRAMADOL
     Dosage: 50 MG, Q4HRS

REACTIONS (12)
  - Acute kidney injury [Unknown]
  - Urinary tract infection [Unknown]
  - Abdominal pain [Recovered/Resolved]
  - Malaise [Unknown]
  - Sepsis [Unknown]
  - Liver abscess [Unknown]
  - Abdominal abscess [Unknown]
  - International normalised ratio abnormal [Unknown]
  - Escherichia infection [Unknown]
  - Chronic kidney disease [Unknown]
  - Decreased appetite [Unknown]
  - Product dose omission [Unknown]

NARRATIVE: CASE EVENT DATE: 20181003
